FAERS Safety Report 6311169-6 (Version None)
Quarter: 2009Q3

REPORT INFORMATION
  Report Type: 
  Country: None (occurrence: None)
  Receive Date: 20090817
  Receipt Date: 20090813
  Transmission Date: 20100115
  Serious: Yes (Death, Hospitalization)
  Sender: FDA-Public Use
  Company Number: FR-ROCHE-569644

PATIENT
  Sex: Male
  Weight: 80 kg

DRUGS (23)
  1. CAPECITABINE [Suspect]
     Indication: GASTRIC CANCER
     Dosage: LAST DOSE PRIOR TO SAE: 28 MAY 2008
     Route: 048
     Dates: start: 20080528
  2. BLINDED BEVACIZUMAB [Suspect]
     Indication: GASTRIC CANCER
     Dosage: LAST DOSE PRIOR TO SAE: 28 MAY 2008, PERMANENTLY DISCONTINUED FORM: INFUSION
     Route: 042
     Dates: start: 20080528, end: 20090616
  3. CISPLATIN [Suspect]
     Indication: GASTRIC CANCER
     Dosage: LAST DOSE PRIOR TO SAE: 28 MAY 2008. FORM: INFUSION
     Route: 042
     Dates: start: 20080528, end: 20080618
  4. CISPLATIN [Suspect]
     Route: 042
     Dates: start: 20080626
  5. HYDRATHION [Concomitant]
     Dosage: DRUG NAME: HYDRATHION (65%)
     Dates: start: 20080528, end: 20080528
  6. EMEND [Concomitant]
     Dates: start: 20080528, end: 20080528
  7. EMEND [Concomitant]
     Dates: start: 20080529, end: 20080530
  8. SOLUPRED [Concomitant]
     Dates: start: 20080528, end: 20080531
  9. ZOPHREN [Concomitant]
     Dates: start: 20080528, end: 20080528
  10. TEGRETOL [Concomitant]
     Dates: start: 19880101
  11. DEPAKENE [Concomitant]
     Dates: start: 19880101
  12. MOTILIUM [Concomitant]
     Dates: start: 20090710, end: 20090710
  13. MORPHINE [Concomitant]
     Dates: start: 20090705
  14. DAFALGAN [Concomitant]
     Dates: start: 20090617, end: 20090619
  15. KARDEGIC [Concomitant]
     Dates: start: 20090619, end: 20090623
  16. ACETAMINOPHEN [Concomitant]
     Dates: start: 20090617, end: 20090729
  17. PARACETAMOL [Concomitant]
     Dates: start: 20090623, end: 20090711
  18. SPASFON [Concomitant]
     Dates: start: 20090702, end: 20090716
  19. PRIMPERAN [Concomitant]
     Dates: start: 20090702, end: 20090716
  20. PRIMPERAN [Concomitant]
     Dates: start: 20090720
  21. MICROPAKINE [Concomitant]
     Dates: start: 20090617, end: 20090713
  22. PERIKABIVEN [Concomitant]
     Dates: start: 20090604, end: 20090716
  23. URBANYL [Concomitant]
     Dates: start: 20090617

REACTIONS (4)
  - CARDIAC FAILURE [None]
  - CEREBROVASCULAR ACCIDENT [None]
  - GASTROINTESTINAL HAEMORRHAGE [None]
  - ISCHAEMIC STROKE [None]
